FAERS Safety Report 5002780-3 (Version None)
Quarter: 2006Q2

REPORT INFORMATION
  Report Type: 
  Country: None (occurrence: None)
  Receive Date: 20060516
  Receipt Date: 20060508
  Transmission Date: 20061013
  Serious: Yes (Life-Threatening, Hospitalization)
  Sender: FDA-Public Use
  Company Number: FR-JNJFOC-20060501756

PATIENT
  Age: 72 Year
  Sex: Female

DRUGS (8)
  1. OFLOCET [Suspect]
     Indication: DRUG USE FOR UNKNOWN INDICATION
     Route: 048
     Dates: start: 20060327, end: 20060329
  2. COUMADIN [Interacting]
     Indication: DRUG USE FOR UNKNOWN INDICATION
     Route: 048
     Dates: start: 19980615, end: 20060328
  3. DEPAKENE [Suspect]
     Indication: DRUG USE FOR UNKNOWN INDICATION
     Route: 048
  4. AUGMENTIN '125' [Suspect]
     Route: 048
     Dates: start: 20060321, end: 20060328
  5. AUGMENTIN '125' [Suspect]
     Indication: BRONCHOPNEUMOPATHY
     Route: 048
     Dates: start: 20060321, end: 20060328
  6. LEVOTHYROX [Concomitant]
     Route: 048
  7. STEROGYL [Concomitant]
     Route: 048
  8. STEROGYL [Concomitant]
     Route: 048

REACTIONS (4)
  - BLOOD SODIUM INCREASED [None]
  - DEHYDRATION [None]
  - DRUG INTERACTION [None]
  - INTERNATIONAL NORMALISED RATIO INCREASED [None]
